FAERS Safety Report 23714471 (Version 1)
Quarter: 2024Q2

REPORT INFORMATION
  Report Type: Report from Study
  Country: CA (occurrence: CA)
  Receive Date: 20240406
  Receipt Date: 20240406
  Transmission Date: 20240716
  Serious: Yes (Other)
  Sender: FDA-Public Use
  Company Number: CA-PBT-009216

PATIENT
  Age: 1 Year
  Sex: Female

DRUGS (8)
  1. TACROLIMUS [Suspect]
     Active Substance: TACROLIMUS
     Indication: Prophylaxis against graft versus host disease
     Route: 065
  2. METHYLPREDNISOLONE [Suspect]
     Active Substance: METHYLPREDNISOLONE
     Indication: Prophylaxis against graft versus host disease
     Route: 065
  3. VEDOLIZUMAB [Concomitant]
     Active Substance: VEDOLIZUMAB
     Indication: Prophylaxis against graft versus host disease
     Dosage: 6 WEEK BEFORE START OF PREPARATIVE REGIMEN, PRE TRANSPLANT
     Route: 065
  4. INFLIXIMAB [Concomitant]
     Active Substance: INFLIXIMAB
     Indication: Inflammatory bowel disease
     Route: 065
  5. VEDOLIZUMAB [Concomitant]
     Active Substance: VEDOLIZUMAB
     Indication: Prophylaxis against graft versus host disease
     Dosage: 4 WEEK BEFORE START OF PREPARATIVE REGIMEN, PRE TRANSPLANT
     Route: 065
  6. VEDOLIZUMAB [Concomitant]
     Active Substance: VEDOLIZUMAB
     Indication: Prophylaxis against graft versus host disease
     Dosage: 1 WEEK BEFORE START OF PREPARATIVE REGIMEN, PRE TRANSPLANT
     Route: 065
  7. VEDOLIZUMAB [Concomitant]
     Active Substance: VEDOLIZUMAB
     Indication: Prophylaxis against graft versus host disease
     Dosage: 2 DOSES, POST-TRANSPLANT
     Route: 065
  8. VEDOLIZUMAB [Concomitant]
     Active Substance: VEDOLIZUMAB
     Indication: Prophylaxis against graft versus host disease
     Dosage: 6 WEEK BEFORE START OF PREPARATIVE REGIMEN, PRE TRANSPLANT
     Route: 065

REACTIONS (2)
  - Product use in unapproved indication [Unknown]
  - Clostridium difficile infection [Unknown]
